FAERS Safety Report 23650101 (Version 1)
Quarter: 2024Q1

REPORT INFORMATION
  Report Type: Spontaneous
  Country: US (occurrence: None)
  Receive Date: 20240319
  Receipt Date: 20240319
  Transmission Date: 20240409
  Serious: No
  Sender: FDA-Public Use
  Company Number: US-ROCHE-3390321

PATIENT
  Age: 67 Year
  Sex: Male

DRUGS (4)
  1. ERIVEDGE [Suspect]
     Active Substance: VISMODEGIB
     Indication: Basal cell carcinoma
     Route: 048
     Dates: start: 20230127, end: 20230710
  2. CHLORTHALIDONE [Concomitant]
     Active Substance: CHLORTHALIDONE
  3. MELOXICAM [Concomitant]
     Active Substance: MELOXICAM
  4. METOPROLOL TARTRATE [Concomitant]
     Active Substance: METOPROLOL TARTRATE

REACTIONS (3)
  - Alopecia [Unknown]
  - Decreased appetite [Unknown]
  - Muscle spasms [Unknown]

NARRATIVE: CASE EVENT DATE: 20230702
